FAERS Safety Report 9916724 (Version 1)
Quarter: 2014Q1

REPORT INFORMATION
  Report Type: Spontaneous
  Country: US (occurrence: US)
  Receive Date: 20140221
  Receipt Date: 20140221
  Transmission Date: 20141002
  Serious: Yes (Other)
  Sender: FDA-Public Use
  Company Number: US-PFIZER INC-2014050684

PATIENT
  Age: 49 Year
  Sex: Male

DRUGS (2)
  1. XANAX [Suspect]
     Indication: ANXIETY
     Dosage: 1 MG, AS NEEDED
     Route: 048
  2. TRAZODONE [Suspect]
     Dosage: 100 MG, 1X/DAY AT BEDTIME
     Route: 048

REACTIONS (2)
  - Suicide attempt [Unknown]
  - Malaise [Unknown]
